FAERS Safety Report 16116417 (Version 1)
Quarter: 2019Q1

REPORT INFORMATION
  Report Type: Spontaneous
  Country: FR (occurrence: FR)
  Receive Date: 20190326
  Receipt Date: 20190326
  Transmission Date: 20190418
  Serious: Yes (Hospitalization)
  Sender: FDA-Public Use
  Company Number: FR-TEVA-2019-FR-1029054

PATIENT
  Age: 86 Year
  Sex: Female

DRUGS (2)
  1. CIPROFLOXACINE [Suspect]
     Active Substance: CIPROFLOXACIN
     Indication: ARTHRITIS INFECTIVE
     Dosage: 1000 MILLIGRAM DAILY;
     Route: 048
     Dates: start: 20181222, end: 20190114
  2. TEICOPLANINE [Suspect]
     Active Substance: TEICOPLANIN
     Indication: ARTHRITIS INFECTIVE
     Dosage: 700 MILLIGRAM DAILY;
     Route: 042
     Dates: start: 20181222, end: 20190114

REACTIONS (1)
  - Drug reaction with eosinophilia and systemic symptoms [Recovered/Resolved]

NARRATIVE: CASE EVENT DATE: 20190112
